FAERS Safety Report 10504680 (Version 2)
Quarter: 2014Q4

REPORT INFORMATION
  Report Type: Spontaneous
  Country: US (occurrence: US)
  Receive Date: 20141008
  Receipt Date: 20141229
  Transmission Date: 20150528
  Serious: Yes (Life-Threatening, Hospitalization)
  Sender: FDA-Public Use
  Company Number: US-BAYER-2014-148645

PATIENT
  Age: 37 Year
  Sex: Female
  Weight: 66.67 kg

DRUGS (3)
  1. MIRENA [Suspect]
     Active Substance: LEVONORGESTREL
     Indication: CONTRACEPTION
     Dosage: 20 MCG/24HR, CONT
     Route: 015
     Dates: start: 20070830, end: 20111117
  2. MAXIDEX OPHTHALMIC [DEXAMETHASONE] [Concomitant]
     Indication: HYPERTENSION
     Dosage: UNK
     Dates: start: 200408
  3. MIRENA [Suspect]
     Active Substance: LEVONORGESTREL
     Indication: CONTRACEPTION
     Dosage: 20 MCG/24HR, CONT
     Route: 015
     Dates: start: 200208, end: 20070830

REACTIONS (10)
  - Uterine perforation [None]
  - Injury [None]
  - Anxiety [None]
  - Anhedonia [None]
  - Depression [None]
  - Device issue [None]
  - Infection [None]
  - General physical health deterioration [None]
  - Abdominal pain [None]
  - Emotional distress [None]

NARRATIVE: CASE EVENT DATE: 200212
